FAERS Safety Report 24905057 (Version 1)
Quarter: 2025Q1

REPORT INFORMATION
  Report Type: Spontaneous
  Country: CH (occurrence: CH)
  Receive Date: 20250130
  Receipt Date: 20250130
  Transmission Date: 20250408
  Serious: Yes (Life-Threatening, Other)
  Sender: EXELA PHARMA SCIENCES
  Company Number: CH-EXELAPHARMA-2025EXLA00008

PATIENT
  Age: 64 Year
  Sex: Female

DRUGS (11)
  1. TRANEXAMIC ACID [Suspect]
     Active Substance: TRANEXAMIC ACID
  2. CHLORHEXIDINE [Concomitant]
     Active Substance: CHLORHEXIDINE
  3. CEFUROXIME [Concomitant]
     Active Substance: CEFUROXIME
     Indication: Antibiotic prophylaxis
  4. FENTANYL [Concomitant]
     Active Substance: FENTANYL
     Indication: General anaesthesia
  5. LIDOCAINE [Concomitant]
     Active Substance: LIDOCAINE
     Indication: General anaesthesia
  6. PROPOFOL [Concomitant]
     Active Substance: PROPOFOL
     Indication: General anaesthesia
  7. REMIFENTANIL [Concomitant]
     Active Substance: REMIFENTANIL
     Indication: General anaesthesia
  8. ROCURONIUM [Concomitant]
     Active Substance: ROCURONIUM BROMIDE
  9. EPHEDRINE [Concomitant]
     Active Substance: EPHEDRINE
     Indication: Neuromuscular blockade
  10. DEXAMETHASONE [Concomitant]
     Active Substance: DEXAMETHASONE
     Indication: Procedural nausea
  11. DEXAMETHASONE [Concomitant]
     Active Substance: DEXAMETHASONE
     Indication: Procedural vomiting

REACTIONS (7)
  - Cardiac arrest [Recovered/Resolved]
  - Tachycardia [Recovered/Resolved]
  - Hypocapnia [Recovered/Resolved]
  - Bradycardia [Recovered/Resolved]
  - Electrocardiogram QRS complex prolonged [Recovered/Resolved]
  - Hypotension [Recovered/Resolved]
  - Anaphylactic shock [Recovered/Resolved]
